FAERS Safety Report 21667751 (Version 6)
Quarter: 2023Q1

REPORT INFORMATION
  Report Type: Spontaneous
  Country: US (occurrence: US)
  Receive Date: 20221201
  Receipt Date: 20230216
  Transmission Date: 20230418
  Serious: No
  Sender: FDA-Public Use
  Company Number: US-PFIZER INC-202201337241

PATIENT
  Age: 78 Year
  Sex: Female
  Weight: 56.7 kg

DRUGS (8)
  1. TIKOSYN [Suspect]
     Active Substance: DOFETILIDE
     Indication: Atrial fibrillation
     Dosage: 500 UG, 2X/DAY
     Dates: start: 201708
  2. DILTIAZEM HYDROCHLORIDE [Suspect]
     Active Substance: DILTIAZEM HYDROCHLORIDE
     Indication: Atrial fibrillation
     Dosage: UNK, 2X/DAY
  3. DILTIAZEM HYDROCHLORIDE [Suspect]
     Active Substance: DILTIAZEM HYDROCHLORIDE
     Dosage: 120 MG, 1X/DAY
     Dates: start: 201708
  4. ELIQUIS [Suspect]
     Active Substance: APIXABAN
     Indication: Atrial fibrillation
     Dosage: 5 MG, 2X/DAY
     Dates: start: 201612
  5. ELIQUIS [Suspect]
     Active Substance: APIXABAN
     Indication: Blood cholesterol increased
  6. LOSARTAN [Suspect]
     Active Substance: LOSARTAN
     Indication: Hypertension
     Dosage: 5 MG, 2X/DAY
     Dates: start: 2018
  7. PRALUENT [Concomitant]
     Active Substance: ALIROCUMAB
     Indication: Blood cholesterol increased
     Dosage: UNK, CYCLIC (EVERY TWO WEEKS)
     Dates: start: 2017
  8. LORAZEPAM [Concomitant]
     Active Substance: LORAZEPAM
     Indication: Anxiety
     Dosage: UNK
     Dates: start: 202112

REACTIONS (5)
  - Dizziness [Not Recovered/Not Resolved]
  - Anxiety [Unknown]
  - Hypertension [Unknown]
  - Dizziness [Unknown]
  - Insomnia [Unknown]
